FAERS Safety Report 20570581 (Version 8)
Quarter: 2022Q4

REPORT INFORMATION
  Report Type: Report from Study
  Country: JP (occurrence: JP)
  Receive Date: 20220309
  Receipt Date: 20221001
  Transmission Date: 20230112
  Serious: Yes (Hospitalization)
  Sender: FDA-Public Use
  Company Number: JP-ABBVIE-22K-087-4307028-00

PATIENT
  Age: 71 Year
  Sex: Female
  Weight: 42.5 kg

DRUGS (18)
  1. RINVOQ [Suspect]
     Active Substance: UPADACITINIB
     Indication: Rheumatoid arthritis
     Dosage: 15 MILLIGRAM
     Route: 048
     Dates: start: 20210421, end: 20210510
  2. RINVOQ [Suspect]
     Active Substance: UPADACITINIB
     Indication: Rheumatoid arthritis
     Route: 048
     Dates: end: 20220106
  3. RHEUMATREX [Suspect]
     Active Substance: METHOTREXATE SODIUM
     Indication: Product used for unknown indication
     Dosage: 4 MG/WEEK
     Dates: end: 20210510
  4. RHEUMATREX [Suspect]
     Active Substance: METHOTREXATE SODIUM
     Indication: Rheumatoid arthritis
     Dosage: 4 MG/WEEK
     Route: 065
     Dates: end: 20210510
  5. LANSOPRAZOLE [Concomitant]
     Active Substance: LANSOPRAZOLE
     Indication: Product used for unknown indication
     Dosage: 15 MILLIGRAM
     Route: 048
     Dates: start: 20210511
  6. LANSOPRAZOLE [Concomitant]
     Active Substance: LANSOPRAZOLE
     Indication: Product used for unknown indication
     Route: 048
     Dates: start: 20210511
  7. PRAVASTATIN SODIUM [Concomitant]
     Active Substance: PRAVASTATIN SODIUM
     Indication: Product used for unknown indication
     Dosage: 10 MILLIGRAM
     Route: 048
     Dates: start: 20210511
  8. PRAVASTATIN SODIUM [Concomitant]
     Active Substance: PRAVASTATIN SODIUM
     Indication: Product used for unknown indication
     Route: 048
     Dates: start: 20210511
  9. SULFAMETHOXAZOLE AND TRIMETHOPRIM [Concomitant]
     Active Substance: SULFAMETHOXAZOLE\TRIMETHOPRIM
     Indication: Product used for unknown indication
     Dosage: 0.5 TABLET
     Route: 048
     Dates: start: 20210522
  10. SULFAMETHOXAZOLE AND TRIMETHOPRIM [Concomitant]
     Active Substance: SULFAMETHOXAZOLE\TRIMETHOPRIM
     Indication: Product used for unknown indication
     Route: 048
     Dates: start: 20210522
  11. ALFACALCIDOL [Concomitant]
     Active Substance: ALFACALCIDOL
     Indication: Product used for unknown indication
     Dosage: 0.25 MICROGRAM
     Route: 048
     Dates: start: 20210522
  12. ALFACALCIDOL [Concomitant]
     Active Substance: ALFACALCIDOL
     Indication: Product used for unknown indication
     Route: 048
     Dates: start: 20210522
  13. BROMFENAC SODIUM HYDRATE [Concomitant]
     Indication: Product used for unknown indication
     Dosage: 2 DROP
     Route: 047
     Dates: start: 20210822, end: 20210824
  14. BROMFENAC SODIUM HYDRATE [Concomitant]
     Indication: Product used for unknown indication
     Route: 047
     Dates: start: 20210822, end: 20210824
  15. Gatifloxacin hydrate [Concomitant]
     Indication: Product used for unknown indication
     Dosage: 2 DROP
     Route: 047
     Dates: start: 20210822, end: 20210824
  16. GATIFLOXACIN [Concomitant]
     Active Substance: GATIFLOXACIN
     Indication: Product used for unknown indication
     Route: 047
     Dates: start: 20210822, end: 20210824
  17. Romosozumab (genetical recombination) [Concomitant]
     Indication: Product used for unknown indication
     Dosage: 210 MILLIGRAM
     Dates: start: 20210812
  18. ROMOSOZUMAB [Concomitant]
     Active Substance: ROMOSOZUMAB
     Indication: Product used for unknown indication
     Dosage: ROMOSOZUMAB (GENETICAL RECOMBINATION)
     Route: 050
     Dates: start: 20210812

REACTIONS (5)
  - Interstitial lung disease [Recovering/Resolving]
  - Cataract nuclear [Recovering/Resolving]
  - Rheumatoid arthritis-associated interstitial lung disease [Recovering/Resolving]
  - Pyrexia [Recovering/Resolving]
  - Herpes zoster [Recovered/Resolved]

NARRATIVE: CASE EVENT DATE: 20210506
